FAERS Safety Report 10481439 (Version 1)
Quarter: 2014Q3

REPORT INFORMATION
  Report Type: Spontaneous
  Country: US (occurrence: US)
  Receive Date: 20140929
  Receipt Date: 20140929
  Transmission Date: 20150326
  Serious: No
  Sender: FDA-Public Use
  Company Number: US-PFIZER INC-2014265021

PATIENT
  Age: 70 Year
  Sex: Female
  Weight: 74.38 kg

DRUGS (2)
  1. PREMARIN [Suspect]
     Active Substance: ESTROGENS, CONJUGATED
     Indication: HORMONE REPLACEMENT THERAPY
     Dosage: UNK (2 APPLICATION 3 TIMES A WEEK ONE IN MORNING AND ONE IN EVENING)
     Dates: start: 2012
  2. BYSTOLIC [Concomitant]
     Active Substance: NEBIVOLOL HYDROCHLORIDE
     Indication: HYPERTENSION
     Dosage: 10 MG, 2X/DAY (10 MG IN THE MORNING AND 10 MG IN THE EVENING)

REACTIONS (1)
  - Blood cholesterol increased [Unknown]
